FAERS Safety Report 17042757 (Version 1)
Quarter: 2019Q4

REPORT INFORMATION
  Report Type: Spontaneous
  Country: US (occurrence: US)
  Receive Date: 20191017
  Receipt Date: 20191017
  Transmission Date: 20200122
  Serious: Yes (Other)
  Sender: FDA-Public Use
  Company Number: None

PATIENT
  Age: 47 Year
  Sex: Female
  Weight: 62.6 kg

DRUGS (9)
  1. DICLOFENAC [Concomitant]
     Active Substance: DICLOFENAC
  2. STOPAIN [Concomitant]
  3. THERAGESIC CREME [Suspect]
     Active Substance: MENTHOL\METHYL SALICYLATE
     Indication: BACK PAIN
     Dosage: ?          QUANTITY:THIN LAYER ;?
     Route: 061
     Dates: start: 201906, end: 20190620
  4. CLONOPIN [Concomitant]
     Active Substance: CLONAZEPAM
  5. AMLODIPINE [Concomitant]
     Active Substance: AMLODIPINE BESYLATE
  6. THERAGESIC CREME [Suspect]
     Active Substance: MENTHOL\METHYL SALICYLATE
     Indication: MUSCLE SPASMS
     Dosage: ?          QUANTITY:THIN LAYER ;?
     Route: 061
     Dates: start: 201906, end: 20190620
  7. LATUDA [Concomitant]
     Active Substance: LURASIDONE HYDROCHLORIDE
  8. GABAPENTIN. [Concomitant]
     Active Substance: GABAPENTIN
  9. TYLENOL [Concomitant]
     Active Substance: ACETAMINOPHEN

REACTIONS (2)
  - Hypersensitivity [None]
  - Burns first degree [None]

NARRATIVE: CASE EVENT DATE: 20190610
